FAERS Safety Report 16873446 (Version 1)
Quarter: 2019Q4

REPORT INFORMATION
  Report Type: Spontaneous
  Country: US (occurrence: US)
  Receive Date: 20191001
  Receipt Date: 20191001
  Transmission Date: 20200122
  Serious: No
  Sender: FDA-Public Use
  Company Number: US-PFIZER INC-2019420770

PATIENT

DRUGS (1)
  1. XELJANZ [Suspect]
     Active Substance: TOFACITINIB CITRATE
     Dosage: HALF A PILL IN THE NOON AND HALF AT NIGHT]

REACTIONS (3)
  - Chest discomfort [Unknown]
  - Wrong technique in product usage process [Unknown]
  - Dyspnoea [Unknown]
